FAERS Safety Report 14670961 (Version 1)
Quarter: 2018Q1

REPORT INFORMATION
  Report Type: Spontaneous
  Country: US (occurrence: US)
  Receive Date: 20180321
  Receipt Date: 20180321
  Transmission Date: 20180509
  Serious: Yes (Hospitalization)
  Sender: FDA-Public Use
  Company Number: None

PATIENT
  Age: 55 Year
  Sex: Female

DRUGS (23)
  1. ORENCIA [Suspect]
     Active Substance: ABATACEPT
     Indication: RHEUMATOID ARTHRITIS
     Route: 058
     Dates: start: 20170728
  2. CEPHALEXIN. [Concomitant]
     Active Substance: CEPHALEXIN
  3. DICLOFENAC [Concomitant]
     Active Substance: DICLOFENAC
  4. DOXYCYCLINE MONO [Concomitant]
     Active Substance: DOXYCYCLINE
  5. GABAPENTIN. [Concomitant]
     Active Substance: GABAPENTIN
  6. VALSARTAN. [Concomitant]
     Active Substance: VALSARTAN
  7. VIRTUSSIN [Concomitant]
  8. ALBUTEROL. [Concomitant]
     Active Substance: ALBUTEROL
  9. AMLODIPIN [Concomitant]
     Active Substance: AMLODIPINE BESYLATE
  10. CYCLOBENZAPRINE. [Concomitant]
     Active Substance: CYCLOBENZAPRINE
  11. PREDNISONE. [Concomitant]
     Active Substance: PREDNISONE
  12. FLUCONAZOLE. [Concomitant]
     Active Substance: FLUCONAZOLE
  13. FLUTICASONE. [Concomitant]
     Active Substance: FLUTICASONE
  14. SYMBICORT [Concomitant]
     Active Substance: BUDESONIDE\FORMOTEROL FUMARATE DIHYDRATE
  15. VICODIN [Concomitant]
     Active Substance: ACETAMINOPHEN\HYDROCODONE BITARTRATE
  16. ACYCLOVIR. [Concomitant]
     Active Substance: ACYCLOVIR
  17. AMITRIPTYLINE [Concomitant]
     Active Substance: AMITRIPTYLINE
  18. ATENOLOL. [Concomitant]
     Active Substance: ATENOLOL
  19. VENTOLIN [Concomitant]
     Active Substance: ALBUTEROL SULFATE
  20. HYDROCODONE [Concomitant]
     Active Substance: HYDROCODONE
  21. SPIRIVA [Concomitant]
     Active Substance: TIOTROPIUM BROMIDE MONOHYDRATE
  22. ADVAIR HFA [Concomitant]
     Active Substance: FLUTICASONE PROPIONATE\SALMETEROL XINAFOATE
  23. BENSONATATE [Concomitant]

REACTIONS (2)
  - Drug dose omission [None]
  - Hospitalisation [None]
